FAERS Safety Report 7537934-5 (Version None)
Quarter: 2011Q2

REPORT INFORMATION
  Report Type: 
  Country: None (occurrence: None)
  Receive Date: 20110609
  Receipt Date: 20110530
  Transmission Date: 20111010
  Serious: Yes (Death)
  Sender: FDA-Public Use
  Company Number: FR-GENENTECH-317247

PATIENT
  Sex: Male

DRUGS (32)
  1. RITUXIMAB [Suspect]
     Dosage: 750 MG, UNK
     Route: 042
     Dates: start: 20071112
  2. CYCLOPHOSPHAMIDE [Suspect]
     Dosage: 1200 MG, UNK
     Route: 065
     Dates: start: 20071213
  3. CYCLOPHOSPHAMIDE [Suspect]
     Dosage: 1200 MG, UNK
     Route: 065
     Dates: start: 20080212
  4. DOXORUBICIN HCL [Suspect]
     Dosage: 50 MG, UNK
     Route: 065
     Dates: start: 20071213
  5. DOXORUBICIN HCL [Suspect]
     Dosage: 50 MG, UNK
     Route: 065
     Dates: start: 20080212
  6. RITUXIMAB [Suspect]
     Indication: LYMPHOMA
     Dosage: UNK
     Route: 042
  7. RITUXIMAB [Suspect]
     Dosage: 750 MG, UNK
     Route: 042
     Dates: start: 20071213
  8. ETOPOSIDE [Suspect]
     Indication: LYMPHOMA
     Dosage: 120 MG, UNK
     Route: 065
     Dates: start: 20071009
  9. ETOPOSIDE [Suspect]
     Dosage: 120 MG, UNK
     Route: 065
     Dates: start: 20071213
  10. SOLU-MEDROL [Suspect]
     Dosage: 80 MG, UNK
     Route: 065
     Dates: start: 20080118
  11. SOLU-MEDROL [Suspect]
     Dosage: 80 MG, UNK
     Route: 065
     Dates: start: 20080212
  12. ETOPOSIDE [Suspect]
     Dosage: 120 MG, UNK
     Route: 065
     Dates: start: 20080212
  13. DOXORUBICIN HCL [Suspect]
     Dosage: 50 MG, UNK
     Route: 065
     Dates: start: 20071112
  14. CYCLOPHOSPHAMIDE [Suspect]
     Indication: LYMPHOMA
     Dosage: 1200 MG, UNK
     Route: 065
     Dates: start: 20071009
  15. DOXORUBICIN HCL [Suspect]
     Dosage: 50 MG, UNK
     Route: 065
     Dates: start: 20080304
  16. SOLU-MEDROL [Suspect]
     Dosage: 80 MG, UNK
     Route: 065
     Dates: start: 20071112
  17. CARMUSTINE [Suspect]
     Indication: LYMPHOMA
     Dosage: 600 MG, UNK
     Route: 065
     Dates: start: 20080423
  18. CYTARABINE [Suspect]
     Indication: LYMPHOMA
     Dosage: 3200 MG, UNK
     Route: 065
     Dates: start: 20080423
  19. DOXORUBICIN HCL [Suspect]
     Indication: LYMPHOMA
     Dosage: 50 MG, UNK
     Route: 065
     Dates: start: 20071009
  20. SOLU-MEDROL [Suspect]
     Dosage: 80 MG, UNK
     Route: 065
     Dates: start: 20071213
  21. MELPHALAN HYDROCHLORIDE [Suspect]
     Indication: LYMPHOMA
     Dosage: 240 MG, UNK
     Route: 065
     Dates: start: 20080423
  22. RITUXIMAB [Suspect]
     Dosage: 750 MG, UNK
     Route: 042
     Dates: start: 20071009
  23. CYCLOPHOSPHAMIDE [Suspect]
     Dosage: 1200 MG, UNK
     Route: 065
     Dates: start: 20080118
  24. ETOPOSIDE [Suspect]
     Dosage: 120 MG, UNK
     Route: 065
     Dates: start: 20080118
  25. SOLU-MEDROL [Suspect]
     Indication: LYMPHOMA
     Dosage: 80 MG, UNK
     Route: 065
     Dates: start: 20071009
  26. SOLU-MEDROL [Suspect]
     Dosage: 80 MG, UNK
     Route: 065
     Dates: start: 20080304
  27. CYCLOPHOSPHAMIDE [Suspect]
     Dosage: 1200 MG, UNK
     Route: 065
     Dates: start: 20071112
  28. CYCLOPHOSPHAMIDE [Suspect]
     Dosage: 1200 MG, UNK
     Route: 065
     Dates: start: 20080304
  29. ETOPOSIDE [Suspect]
     Dosage: 120 MG, UNK
     Route: 065
     Dates: start: 20071112
  30. ETOPOSIDE [Suspect]
     Dosage: 120 MG, UNK
     Route: 065
     Dates: start: 20080304
  31. ETOPOSIDE [Suspect]
     Dosage: 1600 MG, UNK
     Route: 065
     Dates: start: 20080423
  32. DOXORUBICIN HCL [Suspect]
     Dosage: 50 MG, UNK
     Route: 065
     Dates: start: 20080118

REACTIONS (2)
  - HERPES ZOSTER [None]
  - LYMPHOMA [None]
